FAERS Safety Report 23127913 (Version 2)
Quarter: 2023Q4

REPORT INFORMATION
  Report Type: Other
  Country: JP (occurrence: JP)
  Receive Date: 20231031
  Receipt Date: 20231122
  Transmission Date: 20240110
  Serious: Yes (Death, Hospitalization, Other)
  Sender: FDA-Public Use
  Company Number: JP-CHUGAI-2023038003

PATIENT
  Age: 2 Month
  Sex: Male
  Weight: 4.73 kg

DRUGS (21)
  1. EVRYSDI [Suspect]
     Active Substance: RISDIPLAM
     Indication: Spinal muscular atrophy
     Dosage: UNK
     Route: 050
     Dates: start: 20220107, end: 20220131
  2. EVRYSDI [Suspect]
     Active Substance: RISDIPLAM
     Dosage: UNK
     Route: 048
     Dates: start: 20220201, end: 20220330
  3. EVRYSDI [Suspect]
     Active Substance: RISDIPLAM
     Dosage: UNK
     Route: 048
     Dates: start: 20220331, end: 20220429
  4. EVRYSDI [Suspect]
     Active Substance: RISDIPLAM
     Dosage: UNK
     Route: 048
     Dates: start: 20220430, end: 20220511
  5. EVRYSDI [Suspect]
     Active Substance: RISDIPLAM
     Dosage: UNK
     Route: 048
     Dates: start: 20220512, end: 20220527
  6. EVRYSDI [Suspect]
     Active Substance: RISDIPLAM
     Dosage: UNK
     Route: 048
     Dates: start: 20220528, end: 20220603
  7. EVRYSDI [Suspect]
     Active Substance: RISDIPLAM
     Dosage: UNK
     Route: 065
     Dates: start: 20230622
  8. MENATETRENONE [Concomitant]
     Active Substance: MENATETRENONE
     Dosage: UNK
     Dates: end: 20220209
  9. CARBOCYSTEINE [Concomitant]
     Active Substance: CARBOCYSTEINE
     Dosage: UNK
     Dates: start: 20220222
  10. PRANLUKAST [Concomitant]
     Active Substance: PRANLUKAST
     Dosage: UNK
     Dates: start: 20220328
  11. MUCOSAL [Concomitant]
     Dosage: UNK
     Dates: start: 20220329
  12. LEVOFLOXACIN [Concomitant]
     Active Substance: LEVOFLOXACIN
     Dosage: UNK
     Dates: start: 20220308, end: 20220322
  13. MIYA-BM [Concomitant]
     Active Substance: CLOSTRIDIUM BUTYRICUM SPORES STRAIN M-55
     Dosage: UNK
     Dates: start: 20220331, end: 20220512
  14. ERYTHROCIN [Concomitant]
     Active Substance: ERYTHROMYCIN LACTOBIONATE
     Dosage: UNK
     Dates: start: 20220407
  15. FAMOTIDINE [Concomitant]
     Active Substance: FAMOTIDINE
     Dosage: UNK
     Dates: start: 20220414, end: 20220421
  16. FAMOTIDINE [Concomitant]
     Active Substance: FAMOTIDINE
     Dosage: UNK
     Dates: start: 20220330, end: 20220414
  17. VEEN D [Concomitant]
     Active Substance: CALCIUM CHLORIDE\DEXTROSE\POTASSIUM CHLORIDE\SODIUM ACETATE\SODIUM CHLORIDE
     Dosage: UNK
     Dates: start: 20220329, end: 20220331
  18. AMPICILLIN SODIUM\SULBACTAM SODIUM [Concomitant]
     Active Substance: AMPICILLIN SODIUM\SULBACTAM SODIUM
     Dosage: UNK
     Dates: start: 20220330, end: 20220405
  19. CLAFORAN [Concomitant]
     Active Substance: CEFOTAXIME SODIUM
     Dosage: UNK
     Dates: start: 20220407, end: 20220411
  20. DEXAMETHASONE SODIUM PHOSPHATE [Concomitant]
     Active Substance: DEXAMETHASONE SODIUM PHOSPHATE
     Dosage: UNK
     Dates: start: 20220418, end: 20220420
  21. ZOLGENSMA [Concomitant]
     Active Substance: ONASEMNOGENE ABEPARVOVEC-XIOI
     Indication: Spinal muscular atrophy
     Dosage: UNK
     Dates: start: 202206

REACTIONS (18)
  - Tracheal obstruction [Fatal]
  - Aspiration [Fatal]
  - Respiratory failure [Fatal]
  - Respiratory tract infection [Unknown]
  - COVID-19 [Unknown]
  - Hepatic failure [Recovering/Resolving]
  - Vomiting [Unknown]
  - Cardio-respiratory arrest [Recovered/Resolved]
  - Disease progression [Unknown]
  - Troponin I increased [Recovered/Resolved]
  - Respiratory disorder [Recovering/Resolving]
  - Pneumonia aspiration [Recovering/Resolving]
  - Dysphagia [Not Recovered/Not Resolved]
  - Drug ineffective [Unknown]
  - Respiratory syncytial virus infection [Recovering/Resolving]
  - Respiratory disorder [Unknown]
  - Productive cough [Unknown]
  - Pyrexia [Unknown]

NARRATIVE: CASE EVENT DATE: 20220118
